FAERS Safety Report 7396968-4 (Version None)
Quarter: 2011Q1

REPORT INFORMATION
  Report Type: 
  Country: None (occurrence: None)
  Receive Date: 20110331
  Receipt Date: 20110331
  Transmission Date: 20110831
  Serious: Yes (Hospitalization)
  Sender: FDA-Public Use
  Company Number: None

PATIENT
  Sex: Male

DRUGS (1)
  1. TOVIAZ [Suspect]
     Indication: HYPERTONIC BLADDER
     Dosage: 4 MG 1X A DAY ORAL
     Route: 048
     Dates: start: 20110314, end: 20110317

REACTIONS (4)
  - CONFUSIONAL STATE [None]
  - GAIT DISTURBANCE [None]
  - ASTHENIA [None]
  - PYREXIA [None]
